FAERS Safety Report 17306279 (Version 3)
Quarter: 2020Q1

REPORT INFORMATION
  Report Type: Report from Study
  Country: FR (occurrence: FR)
  Receive Date: 20200123
  Receipt Date: 20200205
  Transmission Date: 20200409
  Serious: Yes (Other)
  Sender: FDA-Public Use
  Company Number: FR-ASTELLAS-2019US040845

PATIENT
  Sex: Male

DRUGS (3)
  1. SOLUPRED [METHYLPREDNISOLONE] [Concomitant]
     Active Substance: METHYLPREDNISOLONE
     Indication: IMMUNOSUPPRESSION
     Dosage: 5 UNSPECIFIED UNIT, TOTAL DAILY DOSE
     Route: 065
     Dates: start: 20180417
  2. TACROLIMUS. [Suspect]
     Active Substance: TACROLIMUS
     Indication: RENAL TRANSPLANT
     Route: 048
     Dates: start: 20180903
  3. LERCAN [Concomitant]
     Active Substance: LERCANIDIPINE
     Indication: HYPERTENSION
     Dosage: 10 UNSPECIFIED UNIT, TOTAL DAILY DOSE
     Route: 065
     Dates: start: 20180416

REACTIONS (1)
  - New onset diabetes after transplantation [Not Recovered/Not Resolved]

NARRATIVE: CASE EVENT DATE: 20180903
